FAERS Safety Report 5084234-1 (Version None)
Quarter: 2006Q3

REPORT INFORMATION
  Report Type: 
  Country: None (occurrence: None)
  Receive Date: 20060821
  Receipt Date: 20060301
  Transmission Date: 20061208
  Serious: Yes (Other)
  Sender: FDA-Public Use
  Company Number: US-BRISTOL-MYERS SQUIBB COMPANY-13299730

PATIENT
  Age: 85 Year
  Sex: Female

DRUGS (1)
  1. TEQUIN [Suspect]
     Indication: SINUSITIS
     Route: 048
     Dates: start: 20051027, end: 20051027

REACTIONS (1)
  - ADVERSE DRUG REACTION [None]
